FAERS Safety Report 20319264 (Version 2)
Quarter: 2022Q1

REPORT INFORMATION
  Report Type: Spontaneous
  Country: BG (occurrence: BG)
  Receive Date: 20220110
  Receipt Date: 20220118
  Transmission Date: 20220423
  Serious: Yes (Other)
  Sender: FDA-Public Use
  Company Number: BG-MYLANLABS-2022M1001124

PATIENT
  Age: 81 Year
  Sex: Female

DRUGS (9)
  1. ESOMEPRAZOLE [Suspect]
     Active Substance: ESOMEPRAZOLE
     Indication: Gastritis erosive
     Dosage: 40 MILLIGRAM, QD
     Route: 048
     Dates: start: 202111, end: 20220104
  2. MEBEVERINE [Suspect]
     Active Substance: MEBEVERINE
     Indication: Gastritis erosive
     Dosage: 200 MILLIGRAM, BID
     Route: 048
     Dates: start: 202111, end: 20220104
  3. REFALGIN [Concomitant]
     Indication: Gastritis erosive
     Dosage: 1 DOSAGE FORM, TID
     Route: 048
     Dates: start: 202111
  4. PROBIEN [Concomitant]
     Indication: Gastritis erosive
     Dosage: 1 DOSAGE FORM, QD
     Route: 048
     Dates: start: 202111
  5. RILMENIX [Concomitant]
     Indication: Hypertension
     Dosage: 1 MILLIGRAM, QD
     Route: 048
  6. FEBUXOSTAT [Concomitant]
     Active Substance: FEBUXOSTAT
     Indication: Renal failure
     Dosage: 120 MILLIGRAM (HALF TABLET EVERY OTHER DAY)
     Route: 048
  7. NEBIVOLOL HYDROCHLORIDE [Concomitant]
     Active Substance: NEBIVOLOL HYDROCHLORIDE
     Indication: Hypertension
     Dosage: 5 MILLIGRAM (HALF TABLET TWICE PER DAY)
     Route: 048
  8. Neosara co [Concomitant]
     Indication: Hypertension
     Dosage: UNK, ONCE (40 MG/ 12,5 MG )
     Route: 048
  9. DIOSMIN\HESPERIDIN [Concomitant]
     Active Substance: DIOSMIN\HESPERIDIN
     Indication: Thrombophlebitis
     Dosage: 500 MILLIGRAM, QD
     Route: 048
     Dates: start: 1991

REACTIONS (6)
  - Dyspnoea at rest [Recovered/Resolved]
  - Heart rate increased [Recovered/Resolved]
  - Dyspnoea exertional [Recovered/Resolved]
  - Oedema peripheral [Not Recovered/Not Resolved]
  - Dizziness [Recovered/Resolved]
  - Off label use [Recovered/Resolved]

NARRATIVE: CASE EVENT DATE: 20211201
